FAERS Safety Report 8986004 (Version 1)
Quarter: 2012Q4

REPORT INFORMATION
  Report Type: 
  Country: GB (occurrence: GB)
  Receive Date: 20121226
  Receipt Date: 20121226
  Transmission Date: 20130627
  Serious: Yes (Hospitalization, Other)
  Sender: FDA-Public Use
  Company Number: GB-JNJFOC-20121210384

PATIENT
  Age: 55 Year
  Sex: Female

DRUGS (12)
  1. CETIRIZINE HYDROCHLORIDE [Suspect]
     Route: 065
  2. CETIRIZINE HYDROCHLORIDE [Suspect]
     Indication: MIGRAINE
     Route: 065
  3. AMITRIPTYLINE [Suspect]
     Indication: MIGRAINE
     Route: 065
  4. MEFENAMIC ACID [Suspect]
     Indication: MIGRAINE
     Route: 065
  5. CAFFEINE [Suspect]
     Indication: MIGRAINE
     Route: 065
  6. ABACAVIR W/LAMIVUDINE [Suspect]
     Indication: HIV INFECTION
     Dosage: 600 MG   300 MG; 1 year 2
     Route: 048
     Dates: start: 201103, end: 201205
  7. REYATAZ [Suspect]
     Indication: HIV INFECTION
     Route: 048
     Dates: start: 201103, end: 201205
  8. RITONAVIR [Suspect]
     Indication: HIV INFECTION
     Route: 048
     Dates: start: 201103, end: 201205
  9. EMTRICITABINE W/TENOFOVIR DISOPROXIL FUMARATE [Concomitant]
     Dosage: 245 MG + 200 MG
     Route: 065
     Dates: start: 201109
  10. EMTRICITABINE W/TENOFOVIR DISOPROXIL FUMARATE [Concomitant]
     Dosage: 245 MG + 200 MG
     Route: 065
     Dates: start: 2010
  11. UNKNOWN MEDICATION [Concomitant]
     Route: 065
     Dates: start: 201109
  12. RALTEGRAVIR [Concomitant]
     Route: 065

REACTIONS (3)
  - Mononeuropathy multiplex [Recovering/Resolving]
  - Lactic acidosis [Recovered/Resolved]
  - Off label use [Unknown]
